FAERS Safety Report 16847044 (Version 1)
Quarter: 2019Q3

REPORT INFORMATION
  Report Type: Report from Study
  Country: IT (occurrence: IT)
  Receive Date: 20190924
  Receipt Date: 20190924
  Transmission Date: 20191005
  Serious: Yes (Other)
  Sender: FDA-Public Use
  Company Number: IT-TEVA-2019-IT-1112194

PATIENT
  Age: 78 Year
  Sex: Male

DRUGS (3)
  1. FLUOROURACIL. [Concomitant]
     Active Substance: FLUOROURACIL
     Indication: GASTROINTESTINAL NEOPLASM
     Dosage: AS A PART OF 6 CYCLES OF FOLFOX REGIMEN (ADJUVANT THERAPY)
     Route: 065
  2. OXALIPLATIN. [Suspect]
     Active Substance: OXALIPLATIN
     Indication: GASTROINTESTINAL NEOPLASM
     Dosage: AS A PART OF 6 CYCLES OF FOLFOX REGIMEN (ADJUVANT THERAPY)
     Route: 065
  3. FOLINIC ACID [Concomitant]
     Active Substance: LEUCOVORIN
     Indication: GASTROINTESTINAL NEOPLASM
     Dosage: AS A PART OF 6 CYCLES OF FOLFOX REGIMEN (ADJUVANT THERAPY)
     Route: 065

REACTIONS (1)
  - Non-cirrhotic portal hypertension [Unknown]
